FAERS Safety Report 21989071 (Version 4)
Quarter: 2023Q2

REPORT INFORMATION
  Report Type: Spontaneous
  Country: US (occurrence: US)
  Receive Date: 20230214
  Receipt Date: 20230518
  Transmission Date: 20230721
  Serious: Yes (Other)
  Sender: FDA-Public Use
  Company Number: US-GLAXOSMITHKLINE-US2022AMR078162

PATIENT

DRUGS (6)
  1. ZEJULA [Suspect]
     Active Substance: NIRAPARIB
     Indication: Ovarian cancer
     Dosage: 200 MG, QD
     Dates: start: 202105, end: 20220510
  2. ZEJULA [Suspect]
     Active Substance: NIRAPARIB
     Dosage: 200 MG, QD, BEDTIME
     Dates: end: 20220609
  3. ZEJULA [Suspect]
     Active Substance: NIRAPARIB
     Dosage: 200 MG, QD
     Dates: start: 20220805
  4. ZEJULA [Suspect]
     Active Substance: NIRAPARIB
     Dosage: 100 MG, QD
     Route: 048
     Dates: start: 20230303
  5. MELOXICAM [Concomitant]
     Active Substance: MELOXICAM
     Indication: Arthralgia
     Dosage: UNK
  6. MELOXICAM [Concomitant]
     Active Substance: MELOXICAM
     Indication: Joint swelling

REACTIONS (30)
  - Osteomyelitis [Unknown]
  - Headache [Recovered/Resolved]
  - Dry throat [Not Recovered/Not Resolved]
  - Gingival pain [Unknown]
  - Toothache [Recovering/Resolving]
  - Back pain [Unknown]
  - Dry skin [Not Recovered/Not Resolved]
  - Pruritus [Recovered/Resolved]
  - Muscle spasms [Recovering/Resolving]
  - Tooth extraction [Recovered/Resolved]
  - Infection [Not Recovered/Not Resolved]
  - Pain [Recovering/Resolving]
  - Drainage [Recovering/Resolving]
  - Weight increased [Not Recovered/Not Resolved]
  - Joint swelling [Recovered/Resolved]
  - Dry mouth [Recovering/Resolving]
  - Haemoglobin increased [Not Recovered/Not Resolved]
  - Loose tooth [Recovered/Resolved]
  - Oral infection [Recovered/Resolved]
  - Rash pustular [Unknown]
  - Dental caries [Recovering/Resolving]
  - Glycosylated haemoglobin increased [Unknown]
  - Mood swings [Recovering/Resolving]
  - Anxiety [Recovering/Resolving]
  - Gingival bleeding [Not Recovered/Not Resolved]
  - Balance disorder [Not Recovered/Not Resolved]
  - Blood pressure increased [Recovering/Resolving]
  - Weight decreased [Unknown]
  - Decreased activity [Recovered/Resolved]
  - Gait disturbance [Unknown]

NARRATIVE: CASE EVENT DATE: 20220801
